FAERS Safety Report 4877190-X (Version None)
Quarter: 2005Q4

REPORT INFORMATION
  Report Type: 
  Country: None (occurrence: None)
  Receive Date: 20051206
  Receipt Date: 20051010
  Transmission Date: 20060501
  Serious: No
  Sender: FDA-Public Use
  Company Number: USA0509109659

PATIENT
  Age: 41 Year
  Sex: Female

DRUGS (11)
  1. CYMBALTA [Suspect]
     Indication: NEURALGIA
     Dosage: 60 MG DAY
     Dates: start: 20050901, end: 20050930
  2. DEPAKOTE [Concomitant]
  3. GEODON [Concomitant]
  4. SEROQUEL [Concomitant]
  5. PROVIGIL [Concomitant]
  6. ALLEGRA [Concomitant]
  7. PROTONIX [Concomitant]
  8. SENOKOT (SENNA ALEXANDRINA) [Concomitant]
  9. FOLIC ACID [Concomitant]
  10. VISTARIL [Concomitant]
  11. LEXAPRO [Concomitant]

REACTIONS (1)
  - ENURESIS [None]
